FAERS Safety Report 7979590-8 (Version None)
Quarter: 2011Q4

REPORT INFORMATION
  Report Type: 
  Country: None (occurrence: None)
  Receive Date: 20111213
  Receipt Date: 20111213
  Transmission Date: 20120403
  Serious: No
  Sender: FDA-Public Use
  Company Number: None

PATIENT
  Age: 61 Year
  Sex: Female
  Weight: 51.9 kg

DRUGS (1)
  1. DALTEPARIN SODIUM [Suspect]
     Indication: PULMONARY EMBOLISM
     Dosage: ML EVERY DAY SQ
     Route: 058
     Dates: start: 20110714

REACTIONS (2)
  - PULMONARY EMBOLISM [None]
  - TREATMENT FAILURE [None]
